FAERS Safety Report 16669126 (Version 1)
Quarter: 2019Q3

REPORT INFORMATION
  Report Type: Spontaneous
  Country: US (occurrence: US)
  Receive Date: 20190805
  Receipt Date: 20190805
  Transmission Date: 20191004
  Serious: Yes (Disabling, Other)
  Sender: FDA-Public Use
  Company Number: None

PATIENT
  Age: 77 Year
  Sex: Male
  Weight: 90 kg

DRUGS (1)
  1. IRBESARTAN AND HYDROCHLO...TABLETS 300MG/12.5 [Suspect]
     Active Substance: HYDROCHLOROTHIAZIDE\IRBESARTAN
     Indication: HYPERTENSION
     Dosage: ?          QUANTITY:1 TABLET(S);?
     Route: 048
     Dates: start: 19420415, end: 20190802

REACTIONS (3)
  - Chills [None]
  - Tremor [None]
  - Discomfort [None]

NARRATIVE: CASE EVENT DATE: 20190802
